FAERS Safety Report 17146603 (Version 1)
Quarter: 2019Q4

REPORT INFORMATION
  Report Type: Spontaneous
  Country: IN (occurrence: IN)
  Receive Date: 20191212
  Receipt Date: 20191212
  Transmission Date: 20200122
  Serious: Yes (Death)
  Sender: FDA-Public Use
  Company Number: IN-PFIZER INC-2019339851

PATIENT
  Age: 71 Year
  Sex: Female

DRUGS (2)
  1. LETROZ [Concomitant]
     Dosage: UNK
  2. PALBACE [Suspect]
     Active Substance: PALBOCICLIB
     Indication: BREAST CANCER METASTATIC
     Dosage: 125 MG, CYCLIC
     Route: 048
     Dates: start: 20190622

REACTIONS (3)
  - Diarrhoea [Unknown]
  - Death [Fatal]
  - Abdominal discomfort [Unknown]
